FAERS Safety Report 25246947 (Version 6)
Quarter: 2025Q4

REPORT INFORMATION
  Report Type: Spontaneous
  Country: JP (occurrence: JP)
  Receive Date: 20250428
  Receipt Date: 20251216
  Transmission Date: 20260117
  Serious: Yes (Life-Threatening, Hospitalization, Other)
  Sender: MERCK SHARP & DOHME LLC
  Company Number: JP-MSD-M2024-30070

PATIENT
  Age: 67 Year
  Sex: Female

DRUGS (6)
  1. KEYTRUDA [Suspect]
     Active Substance: PEMBROLIZUMAB
     Indication: Triple negative breast cancer
     Dosage: FIRST ADMIN DATE: 2024
     Route: 041
     Dates: end: 202503
  2. KEYTRUDA [Suspect]
     Active Substance: PEMBROLIZUMAB
     Indication: Triple negative breast cancer
     Dosage: LAST ADMIN DATE: 2024
     Route: 041
     Dates: start: 202402
  3. CARBOPLATIN [Concomitant]
     Active Substance: CARBOPLATIN
     Dosage: LAST ADMIN DATE: 2024
     Route: 042
     Dates: start: 202402
  4. PACLITAXEL [Concomitant]
     Active Substance: PACLITAXEL
     Dosage: LAST ADMIN DATE: 2024
     Route: 042
     Dates: start: 2024
  5. EPIRUBICIN HYDROCHLORIDE [Concomitant]
     Active Substance: EPIRUBICIN HYDROCHLORIDE
     Dosage: LAST ADMIN DATE: 2024
     Route: 042
     Dates: start: 2024
  6. CYCLOPHOSPHAMIDE [Concomitant]
     Active Substance: CYCLOPHOSPHAMIDE
     Dosage: LAST ADMIN DATE: 2024
     Route: 042
     Dates: start: 2024

REACTIONS (7)
  - Sepsis [Recovered/Resolved]
  - Vascular device infection [Unknown]
  - Feeding disorder [Unknown]
  - Malignant neoplasm progression [Unknown]
  - Asthenia [Recovered/Resolved]
  - Immune-mediated dermatitis [Recovered/Resolved]
  - Immune-mediated adrenal insufficiency [Not Recovered/Not Resolved]

NARRATIVE: CASE EVENT DATE: 20240101
